FAERS Safety Report 10228058 (Version 1)
Quarter: 2014Q2

REPORT INFORMATION
  Report Type: Spontaneous
  Country: DE (occurrence: DE)
  Receive Date: 20140610
  Receipt Date: 20140610
  Transmission Date: 20141212
  Serious: Yes (Death)
  Sender: FDA-Public Use
  Company Number: DE-ALEXION PHARMACEUTICALS INC.-A201402204

PATIENT
  Sex: 0

DRUGS (2)
  1. SOLIRIS 300MG [Suspect]
     Indication: HAEMOLYTIC URAEMIC SYNDROME
     Route: 065
  2. SOLIRIS 300MG [Suspect]
     Indication: OFF LABEL USE

REACTIONS (4)
  - Cerebrovascular accident [Fatal]
  - Renal failure acute [Fatal]
  - Haemolytic uraemic syndrome [Fatal]
  - Off label use [Unknown]
